FAERS Safety Report 5274618-0 (Version None)
Quarter: 2007Q1

REPORT INFORMATION
  Report Type: 
  Country: None (occurrence: None)
  Receive Date: 20070320
  Receipt Date: 20070313
  Transmission Date: 20070707
  Serious: Yes (Other)
  Sender: FDA-Public Use
  Company Number: WWWISSUE-64

PATIENT
  Age: 2 Year
  Sex: Male

DRUGS (1)
  1. PHENOBARBITAL TABLETS, 30 MG/ WEST-WARD [Suspect]
     Dosage: ORAL  SEVERAL DAYS
     Route: 048

REACTIONS (2)
  - DRUG WITHDRAWAL SYNDROME [None]
  - STEVENS-JOHNSON SYNDROME [None]
